FAERS Safety Report 15878527 (Version 1)
Quarter: 2019Q1

REPORT INFORMATION
  Report Type: Spontaneous
  Country: CZ (occurrence: CZ)
  Receive Date: 20190128
  Receipt Date: 20190128
  Transmission Date: 20190417
  Serious: Yes (Other)
  Sender: FDA-Public Use
  Company Number: CZ-AUROBINDO-AUR-APL-2019-002799

PATIENT
  Age: 67 Year
  Sex: Male

DRUGS (2)
  1. GLICLAZIDE [Suspect]
     Active Substance: GLICLAZIDE
     Indication: TYPE 2 DIABETES MELLITUS
     Dosage: 90 MILLIGRAM, DAILY (GLICLAZID MR)
     Route: 065
  2. METFORMIN [Suspect]
     Active Substance: METFORMIN HYDROCHLORIDE
     Indication: TYPE 2 DIABETES MELLITUS
     Dosage: 2550 MILLIGRAM, DAILY
     Route: 065

REACTIONS (1)
  - Hyperglycaemia [Recovered/Resolved]
